FAERS Safety Report 20872656 (Version 1)
Quarter: 2022Q2

REPORT INFORMATION
  Report Type: Spontaneous
  Country: US (occurrence: None)
  Receive Date: 20220525
  Receipt Date: 20220525
  Transmission Date: 20220721
  Serious: Yes (Disabling)
  Sender: FDA-Public Use
  Company Number: None

PATIENT
  Age: 29 Year
  Sex: Female
  Weight: 41.4 kg

DRUGS (5)
  1. SUBOXONE [Suspect]
     Active Substance: BUPRENORPHINE HYDROCHLORIDE\NALOXONE HYDROCHLORIDE
     Indication: Drug abuse
     Dosage: OTHER QUANTITY : 1 SUBLINGUAL FILM;?FREQUENCY : DAILY;?
     Route: 060
  2. BUPRENORPHINE AND NALOXONE [Suspect]
     Active Substance: BUPRENORPHINE HYDROCHLORIDE\NALOXONE HYDROCHLORIDE
     Indication: Drug abuse
     Dosage: OTHER QUANTITY : 1 SUBLINGUAL FILM;?FREQUENCY : DAILY;?
     Route: 060
  3. LAMOTRIGINE [Concomitant]
     Active Substance: LAMOTRIGINE
  4. CLONAZEPAM [Concomitant]
     Active Substance: CLONAZEPAM
  5. Lactaid (lactase enzyme) [Concomitant]

REACTIONS (2)
  - Dental caries [None]
  - Drug ineffective [None]

NARRATIVE: CASE EVENT DATE: 20220525
